FAERS Safety Report 23178904 (Version 1)
Quarter: 2023Q4

REPORT INFORMATION
  Report Type: Spontaneous
  Country: CN (occurrence: CN)
  Receive Date: 20231113
  Receipt Date: 20231113
  Transmission Date: 20240109
  Serious: Yes (Other)
  Sender: FDA-Public Use
  Company Number: CN-PFIZER INC-PV202300182785

PATIENT
  Age: 52 Year
  Sex: Male
  Weight: 63 kg

DRUGS (3)
  1. EPIRUBICIN HYDROCHLORIDE [Suspect]
     Active Substance: EPIRUBICIN HYDROCHLORIDE
     Indication: Interventional procedure
     Dosage: 50 MG, 1X/DAY
     Route: 013
     Dates: start: 20230718, end: 20230718
  2. OXALIPLATIN [Suspect]
     Active Substance: OXALIPLATIN
     Indication: Interventional procedure
     Dosage: 50 MG, 1X/DAY
     Route: 013
     Dates: start: 20230718, end: 20230718
  3. IODIZED OIL [Concomitant]
     Active Substance: IODIZED OIL
     Indication: Interventional procedure
     Dosage: 3 ML
     Route: 013
     Dates: start: 20230718, end: 20230718

REACTIONS (5)
  - Hepatic function abnormal [Recovering/Resolving]
  - Alanine aminotransferase increased [Recovering/Resolving]
  - Aspartate aminotransferase increased [Recovering/Resolving]
  - Off label use [Unknown]
  - Off label use [Unknown]

NARRATIVE: CASE EVENT DATE: 20230718
